FAERS Safety Report 7059762-X (Version None)
Quarter: 2010Q4

REPORT INFORMATION
  Report Type: 
  Country: None (occurrence: None)
  Receive Date: 20101025
  Receipt Date: 20101019
  Transmission Date: 20110411
  Serious: Yes (Other)
  Sender: FDA-Public Use
  Company Number: AT-PFIZER INC-2010132212

PATIENT
  Sex: Female

DRUGS (1)
  1. DEPOCON - FERTIGSPRITZE [Suspect]
     Dosage: 150 MG, EVERY 3 MONTHS
     Route: 030
     Dates: start: 20101001

REACTIONS (7)
  - ABDOMINAL DISCOMFORT [None]
  - DECREASED APPETITE [None]
  - DEPRESSION [None]
  - MENORRHAGIA [None]
  - NAUSEA [None]
  - NIGHT SWEATS [None]
  - PERIPHERAL VASCULAR DISORDER [None]
